FAERS Safety Report 10075673 (Version 1)
Quarter: 2014Q2

REPORT INFORMATION
  Report Type: Spontaneous
  Country: JP (occurrence: JP)
  Receive Date: 20140414
  Receipt Date: 20140414
  Transmission Date: 20141212
  Serious: Yes (Death)
  Sender: FDA-Public Use
  Company Number: JP-MYLANLABS-2014S1008059

PATIENT
  Age: 73 Year
  Sex: Male

DRUGS (4)
  1. PREDNISOLONE [Suspect]
     Indication: T-CELL LYMPHOMA
  2. ENDOXAN [Suspect]
     Indication: T-CELL LYMPHOMA
     Route: 041
  3. ONCOVIN [Suspect]
     Indication: T-CELL LYMPHOMA
     Route: 041
  4. PIRARUBICIN [Suspect]
     Indication: T-CELL LYMPHOMA
     Route: 041

REACTIONS (2)
  - Intestinal obstruction [Fatal]
  - Small intestinal perforation [Fatal]
